FAERS Safety Report 18940773 (Version 1)
Quarter: 2021Q1

REPORT INFORMATION
  Report Type: Spontaneous
  Country: AU (occurrence: AU)
  Receive Date: 20210225
  Receipt Date: 20210225
  Transmission Date: 20210420
  Serious: Yes (Other)
  Sender: FDA-Public Use
  Company Number: NVSC2021AU035643

PATIENT
  Age: 67 Year
  Sex: Female

DRUGS (1)
  1. CYCLOSPORINE. [Suspect]
     Active Substance: CYCLOSPORINE
     Indication: BONE MARROW TRANSPLANT
     Dosage: 25 MG, BID
     Route: 065
     Dates: start: 200904

REACTIONS (5)
  - Graft versus host disease [Unknown]
  - Pain [Unknown]
  - Skin disorder [Unknown]
  - Hypoaesthesia [Unknown]
  - Paraesthesia [Unknown]
